FAERS Safety Report 17173403 (Version 2)
Quarter: 2019Q4

REPORT INFORMATION
  Report Type: Spontaneous
  Country: US (occurrence: US)
  Receive Date: 20191218
  Receipt Date: 20191223
  Transmission Date: 20200122
  Serious: Yes (Death)
  Sender: FDA-Public Use
  Company Number: US-LUNDBECK-DKLU3009222

PATIENT
  Age: 65 Year
  Sex: Female

DRUGS (2)
  1. NORTHERA [Suspect]
     Active Substance: DROXIDOPA
     Indication: AUTONOMIC NEUROPATHY
     Route: 048
     Dates: start: 20191028
  2. NORTHERA [Suspect]
     Active Substance: DROXIDOPA
     Indication: HUNTINGTON^S DISEASE
     Route: 048
     Dates: start: 20191020

REACTIONS (1)
  - Death [Fatal]

NARRATIVE: CASE EVENT DATE: 20191202
